FAERS Safety Report 22935599 (Version 3)
Quarter: 2023Q4

REPORT INFORMATION
  Report Type: Spontaneous
  Country: US (occurrence: US)
  Receive Date: 20230912
  Receipt Date: 20231020
  Transmission Date: 20240110
  Serious: No
  Sender: FDA-Public Use
  Company Number: US-Calliditas-2023CAL01154

PATIENT
  Age: 36 Year
  Sex: Female
  Weight: 98.88 kg

DRUGS (20)
  1. TARPEYO [Suspect]
     Active Substance: BUDESONIDE
     Indication: Haematuria
     Dosage: 16MG (4MG CAPSULES) ONCE DAILY
     Route: 048
     Dates: start: 20230614
  2. ALLOPURINOL [Concomitant]
     Active Substance: ALLOPURINOL
     Dosage: 2 TAB A DAY
  3. CETIRIZINE [Concomitant]
     Active Substance: CETIRIZINE HYDROCHLORIDE
     Dosage: 1 TAB A DAY
  4. CINACALCET [Concomitant]
     Active Substance: CINACALCET
     Dosage: 1 TAB EVERY OTHER DAY
  5. FLUOXETINE [Concomitant]
     Active Substance: FLUOXETINE HYDROCHLORIDE
     Dosage: 2 TAB A DAY
  6. GABAPENTIN [Concomitant]
     Active Substance: GABAPENTIN
     Dosage: 1 TAB AT NIGHT
  7. IRBESARTAN [Concomitant]
     Active Substance: IRBESARTAN
     Dosage: 1 TAB A DAY
  8. LEVOTHYROXINE [Concomitant]
     Active Substance: LEVOTHYROXINE
     Dosage: 1 TAB A DAY
  9. METOPROLOL [Concomitant]
     Active Substance: METOPROLOL
     Dosage: 2 TAB A DAY
  10. OMEPRAZOLE [Concomitant]
     Active Substance: OMEPRAZOLE
     Dosage: 2 TAB A DAY
  11. ROPINIROLE [Concomitant]
     Active Substance: ROPINIROLE
     Dosage: TWICE A DAY
  12. BUMETANIDE [Concomitant]
     Active Substance: BUMETANIDE
     Dosage: TWICE A DAY
  13. TYLENOL [Concomitant]
     Active Substance: ACETAMINOPHEN
     Dosage: AS NEEDED
  14. VITAMIN B [Concomitant]
     Active Substance: VITAMIN B
     Dosage: VITAMIN B6
  15. CHOLECALCIFEROL [Concomitant]
     Active Substance: CHOLECALCIFEROL
  16. FOLIC ACID [Concomitant]
     Active Substance: FOLIC ACID
  17. IRON [Concomitant]
     Active Substance: IRON
     Dosage: EVERY OTHER DAY
  18. CYANOCOBALAMIN [Concomitant]
     Active Substance: CYANOCOBALAMIN
     Dosage: EVERY 14 DAYS
  19. NORETHINDRONE AND ETHINYL ESTRADIOL AND FERROUS FUMARATE [ETHINYLES... [Concomitant]
     Dosage: 1 TAB A DAY
  20. FLUTICASONE [Concomitant]
     Active Substance: FLUTICASONE
     Dosage: 2 SPRAYS A DAY AS NEEDED

REACTIONS (3)
  - Headache [Not Recovered/Not Resolved]
  - Hypertension [Not Recovered/Not Resolved]
  - Prescribed underdose [Not Recovered/Not Resolved]

NARRATIVE: CASE EVENT DATE: 20230701
